FAERS Safety Report 11872260 (Version 1)
Quarter: 2015Q4

REPORT INFORMATION
  Report Type: Spontaneous
  Country: None (occurrence: None)
  Receive Date: 20151224
  Receipt Date: 20151224
  Transmission Date: 20160305
  Serious: Yes (Other)
  Sender: FDA-Public Use
  Company Number: None

PATIENT
  Age: 59 Year
  Sex: Female

DRUGS (1)
  1. KADIAN (GENERIC) 100 MG UPSHEAR-? [Suspect]
     Active Substance: MORPHINE SULFATE
     Indication: PAIN
     Route: 048

REACTIONS (8)
  - Headache [None]
  - Condition aggravated [None]
  - Product packaging confusion [None]
  - Vomiting [None]
  - Nausea [None]
  - Drug effect decreased [None]
  - General physical health deterioration [None]
  - Muscle spasms [None]

NARRATIVE: CASE EVENT DATE: 20151108
